FAERS Safety Report 24107113 (Version 4)
Quarter: 2025Q1

REPORT INFORMATION
  Report Type: Report from Study
  Country: US (occurrence: US)
  Receive Date: 20240718
  Receipt Date: 20250216
  Transmission Date: 20250409
  Serious: Yes (Other)
  Sender: ABBVIE
  Company Number: US-ABBVIE-5841528

PATIENT
  Age: 39 Year
  Sex: Male

DRUGS (2)
  1. HUMIRA [Suspect]
     Active Substance: ADALIMUMAB
     Indication: Crohn^s disease
     Route: 058
  2. HUMIRA [Suspect]
     Active Substance: ADALIMUMAB
     Route: 058
     Dates: start: 20200730

REACTIONS (17)
  - Loss of consciousness [Unknown]
  - Seizure [Unknown]
  - Gastrointestinal haemorrhage [Unknown]
  - Serum ferritin decreased [Not Recovered/Not Resolved]
  - Blood iron decreased [Not Recovered/Not Resolved]
  - Hypertension [Unknown]
  - Fall [Unknown]
  - Skull fracture [Unknown]
  - Malabsorption [Not Recovered/Not Resolved]
  - Nausea [Unknown]
  - Autonomic nervous system imbalance [Recovered/Resolved]
  - Tooth fracture [Unknown]
  - Sinus tachycardia [Unknown]
  - Heart rate increased [Unknown]
  - Tinnitus [Recovered/Resolved]
  - Arthralgia [Unknown]
  - Pain in extremity [Unknown]

NARRATIVE: CASE EVENT DATE: 20241227
